FAERS Safety Report 23428360 (Version 1)
Quarter: 2024Q1

REPORT INFORMATION
  Report Type: Spontaneous
  Country: US (occurrence: US)
  Receive Date: 20240122
  Receipt Date: 20240122
  Transmission Date: 20240410
  Serious: No
  Sender: FDA-Public Use
  Company Number: US-BRISTOL-MYERS SQUIBB COMPANY-2024-010950

PATIENT
  Age: 62 Year
  Sex: Male
  Weight: 83.46 kg

DRUGS (5)
  1. REVLIMID [Suspect]
     Active Substance: LENALIDOMIDE
     Indication: Plasma cell myeloma
     Dosage: FREQUENCY: FOR 14 DAYS
     Route: 048
     Dates: start: 20231127, end: 20231230
  2. VELCADE [Concomitant]
     Active Substance: BORTEZOMIB
  3. DARZALEX [Concomitant]
     Active Substance: DARATUMUMAB
  4. XGEVA [Concomitant]
     Active Substance: DENOSUMAB
  5. LOSARTAN [Concomitant]
     Active Substance: LOSARTAN

REACTIONS (2)
  - Bronchitis [Recovered/Resolved]
  - Off label use [Unknown]
